FAERS Safety Report 9081217 (Version 1)
Quarter: 2013Q1

REPORT INFORMATION
  Report Type: Spontaneous
  Country: US (occurrence: US)
  Receive Date: 20130218
  Receipt Date: 20130218
  Transmission Date: 20140127
  Serious: No
  Sender: FDA-Public Use
  Company Number: US-PFIZER INC-2013057756

PATIENT
  Age: 50 Year
  Sex: 0

DRUGS (3)
  1. SUTENT [Suspect]
     Indication: METASTATIC RENAL CELL CARCINOMA
     Dosage: 50 MG, (28 DAYS ON AND 14 DAYS OFF)
     Dates: start: 20120716
  2. METOPROLOL [Concomitant]
     Dosage: 100 MG, 1X/DAY
  3. LISINOPRIL [Concomitant]
     Dosage: 10 MG, 1X/DAY

REACTIONS (2)
  - Fatigue [Not Recovered/Not Resolved]
  - Abdominal discomfort [Not Recovered/Not Resolved]
